FAERS Safety Report 15568955 (Version 1)
Quarter: 2018Q4

REPORT INFORMATION
  Report Type: Spontaneous
  Country: GB (occurrence: GB)
  Receive Date: 20181031
  Receipt Date: 20181031
  Transmission Date: 20190205
  Serious: Yes (Hospitalization, Other)
  Sender: FDA-Public Use
  Company Number: GB-DRREDDYS-USA/UKI/18/0105186

PATIENT
  Age: 14 Year
  Sex: Male

DRUGS (1)
  1. FLUOXETINE [Suspect]
     Active Substance: FLUOXETINE HYDROCHLORIDE
     Indication: DEPRESSION
     Route: 048

REACTIONS (4)
  - Serotonin syndrome [Recovering/Resolving]
  - Rhabdomyolysis [Recovering/Resolving]
  - Intentional overdose [Recovering/Resolving]
  - Generalised tonic-clonic seizure [Recovering/Resolving]
